FAERS Safety Report 9283330 (Version 1)
Quarter: 2013Q2

REPORT INFORMATION
  Report Type: Report from Study
  Country: NZ (occurrence: NZ)
  Receive Date: 20130510
  Receipt Date: 20130510
  Transmission Date: 20140414
  Serious: Yes (Other)
  Sender: FDA-Public Use
  Company Number: PHHY2013NZ045945

PATIENT
  Age: 26 Year
  Sex: Male

DRUGS (5)
  1. CLOZAPINE [Suspect]
     Dosage: UNK UKN, UNK
     Route: 048
  2. OLANZAPINE [Concomitant]
     Dosage: UNK UKN, UNK
     Route: 048
  3. OMEPRAZOLE [Concomitant]
     Dosage: UNK UKN, UNK
     Route: 048
  4. AMISULPRIDE [Concomitant]
     Dosage: UNK UKN, UNK
     Route: 048
  5. LORAZEPAM [Concomitant]
     Dosage: UNK UKN, UNK
     Route: 048

REACTIONS (3)
  - Cardiac failure [Unknown]
  - Myocarditis [Unknown]
  - Pharyngitis [Unknown]
